FAERS Safety Report 11220031 (Version 3)
Quarter: 2015Q3

REPORT INFORMATION
  Report Type: Report from Study
  Country: AU (occurrence: AU)
  Receive Date: 20150625
  Receipt Date: 20150827
  Transmission Date: 20151125
  Serious: Yes (Other)
  Sender: FDA-Public Use
  Company Number: AU-ABBVIE-15K-008-1389634-00

PATIENT
  Age: 36 Year
  Sex: Female

DRUGS (2)
  1. HUMIRA [Suspect]
     Active Substance: ADALIMUMAB
     Route: 065
     Dates: start: 20150428
  2. HUMIRA [Suspect]
     Active Substance: ADALIMUMAB
     Indication: RHEUMATOID ARTHRITIS
     Route: 065
     Dates: end: 20150428

REACTIONS (24)
  - Neck pain [Unknown]
  - Influenza [Recovered/Resolved]
  - Adverse drug reaction [Recovered/Resolved]
  - Dysgeusia [Recovering/Resolving]
  - Muscle tightness [Unknown]
  - Ear pain [Recovering/Resolving]
  - Depressed mood [Recovered/Resolved]
  - Abnormal dreams [Recovered/Resolved]
  - Drug effect decreased [Unknown]
  - Palpitations [Not Recovered/Not Resolved]
  - Headache [Not Recovered/Not Resolved]
  - Rash [Not Recovered/Not Resolved]
  - Gastroenteritis [Recovered/Resolved]
  - Drug intolerance [Unknown]
  - Rhinorrhoea [Recovering/Resolving]
  - Malaise [Recovering/Resolving]
  - Infection [Not Recovered/Not Resolved]
  - Sensory disturbance [Not Recovered/Not Resolved]
  - Tachycardia [Unknown]
  - Cough [Not Recovered/Not Resolved]
  - Insomnia [Recovered/Resolved]
  - Lower respiratory tract infection [Recovered/Resolved]
  - Chills [Recovered/Resolved]
  - Weight decreased [Recovered/Resolved]

NARRATIVE: CASE EVENT DATE: 2015
